FAERS Safety Report 13812059 (Version 3)
Quarter: 2018Q1

REPORT INFORMATION
  Report Type: Report from Study
  Country: US (occurrence: US)
  Receive Date: 20170728
  Receipt Date: 20180125
  Transmission Date: 20180508
  Serious: No
  Sender: FDA-Public Use
  Company Number: US-AMGEN-USASL2017097390

PATIENT
  Age: 62 Year
  Sex: Female

DRUGS (1)
  1. REPATHA [Suspect]
     Active Substance: EVOLOCUMAB
     Indication: HYPERCHOLESTEROLAEMIA
     Dosage: 140 MG, Q2WK
     Route: 065
     Dates: start: 201610, end: 201707

REACTIONS (15)
  - Respiratory disorder [Unknown]
  - Ear pain [Unknown]
  - Hypersensitivity [Unknown]
  - Vertigo [Unknown]
  - Dizziness [Unknown]
  - Blood cholesterol increased [Unknown]
  - Headache [Unknown]
  - Pharyngeal disorder [Unknown]
  - Malaise [Unknown]
  - Tinnitus [Unknown]
  - Influenza [Unknown]
  - Insomnia [Unknown]
  - Lung disorder [Unknown]
  - Pyrexia [Unknown]
  - Sinusitis [Unknown]

NARRATIVE: CASE EVENT DATE: 2017
